FAERS Safety Report 14568382 (Version 1)
Quarter: 2018Q1

REPORT INFORMATION
  Report Type: Report from Study
  Country: CA (occurrence: CA)
  Receive Date: 20180223
  Receipt Date: 20180223
  Transmission Date: 20180509
  Serious: Yes (Other)
  Sender: FDA-Public Use
  Company Number: CA-TAKEDA-2018TUS004170

PATIENT
  Age: 29 Year
  Sex: Male

DRUGS (4)
  1. SALOFALK                           /00000301/ [Concomitant]
     Active Substance: MESALAMINE
     Dosage: UNK
  2. SALOFALK                           /00000301/ [Concomitant]
     Active Substance: MESALAMINE
     Dosage: UNK
     Route: 048
  3. VEDOLIZUMAB [Suspect]
     Active Substance: VEDOLIZUMAB
     Indication: COLITIS ULCERATIVE
     Dosage: 300 MG, UNK
     Route: 042
     Dates: start: 20170720
  4. CORTIMENT                          /00028601/ [Concomitant]
     Active Substance: HYDROCORTISONE
     Dosage: 9 MG, QD
     Dates: start: 20170626

REACTIONS (1)
  - Cyst [Unknown]

NARRATIVE: CASE EVENT DATE: 20180211
